FAERS Safety Report 20686379 (Version 1)
Quarter: 2022Q2

REPORT INFORMATION
  Report Type: Spontaneous
  Country: US (occurrence: US)
  Receive Date: 20220407
  Receipt Date: 20220407
  Transmission Date: 20220721
  Serious: No
  Sender: FDA-Public Use
  Company Number: US-PFIZER INC-202101154199

PATIENT
  Age: 57 Year
  Sex: Female
  Weight: 81.65 kg

DRUGS (1)
  1. IBRANCE [Suspect]
     Active Substance: PALBOCICLIB
     Indication: Breast cancer metastatic
     Dosage: 75 MG, CYCLIC (FOR 21 DAYS ON STARTING FIRST OF MONTH;OFF UNTIL FIRST OF THE NEXT MONTH)
     Route: 048
     Dates: start: 2017

REACTIONS (1)
  - Memory impairment [Unknown]
